FAERS Safety Report 16141593 (Version 1)
Quarter: 2019Q2

REPORT INFORMATION
  Report Type: Spontaneous
  Country: US (occurrence: US)
  Receive Date: 20190324
  Receipt Date: 20190324
  Transmission Date: 20190711
  Serious: Yes (Death, Life-Threatening, Hospitalization, Disabling, Other)
  Sender: FDA-Public Use
  Company Number: None

PATIENT
  Age: 24 Year
  Sex: Male
  Weight: 65.25 kg

DRUGS (5)
  1. ABILIFY MAINTENA [Suspect]
     Active Substance: ARIPIPRAZOLE
  2. VRAYLAR [Concomitant]
     Active Substance: CARIPRAZINE
  3. GEODON [Concomitant]
     Active Substance: ZIPRASIDONE HYDROCHLORIDE\ZIPRASIDONE MESYLATE
  4. ABILIFY [Suspect]
     Active Substance: ARIPIPRAZOLE
     Indication: SCHIZOPHRENIA
     Route: 008
     Dates: start: 20140906, end: 20180128
  5. INVEGA [Concomitant]
     Active Substance: PALIPERIDONE

REACTIONS (3)
  - Nasal discomfort [None]
  - Nasal congestion [None]
  - Impaired work ability [None]

NARRATIVE: CASE EVENT DATE: 20171204
